FAERS Safety Report 15035023 (Version 5)
Quarter: 2019Q2

REPORT INFORMATION
  Report Type: Spontaneous
  Country: US (occurrence: US)
  Receive Date: 20180620
  Receipt Date: 20190424
  Transmission Date: 20190711
  Serious: No
  Sender: FDA-Public Use
  Company Number: US-PFIZER INC-2018250713

PATIENT
  Age: 75 Year
  Sex: Female
  Weight: 62.59 kg

DRUGS (2)
  1. CEPHALEXINE [Suspect]
     Active Substance: CEPHALEXIN
     Dosage: UNK
  2. FLAGYL [Suspect]
     Active Substance: METRONIDAZOLE\METRONIDAZOLE HYDROCHLORIDE
     Dosage: UNK

REACTIONS (2)
  - Drug hypersensitivity [Unknown]
  - Rash [Unknown]

NARRATIVE: CASE EVENT DATE: 20130806
